FAERS Safety Report 8963053 (Version 1)
Quarter: 2012Q4

REPORT INFORMATION
  Report Type: Report from Study
  Country: CA (occurrence: CA)
  Receive Date: 20121213
  Receipt Date: 20121213
  Transmission Date: 20130627
  Serious: Yes (Other)
  Sender: FDA-Public Use
  Company Number: CA-ROCHE-1167296

PATIENT
  Age: 61 Year

DRUGS (3)
  1. OMALIZUMAB [Suspect]
     Indication: ASTHMA
     Route: 058
     Dates: start: 20050803
  2. OMALIZUMAB [Suspect]
     Route: 058
     Dates: start: 20050817
  3. OMALIZUMAB [Suspect]
     Route: 058
     Dates: start: 20050901

REACTIONS (5)
  - Asthma [Recovering/Resolving]
  - Heart rate increased [Unknown]
  - Body temperature decreased [Unknown]
  - Injection site haematoma [Recovering/Resolving]
  - Nasopharyngitis [Unknown]
